FAERS Safety Report 5215900-2 (Version None)
Quarter: 2007Q1

REPORT INFORMATION
  Report Type: 
  Country: None (occurrence: None)
  Receive Date: 20070123
  Receipt Date: 20070116
  Transmission Date: 20070707
  Serious: Yes (Hospitalization)
  Sender: FDA-Public Use
  Company Number: CA-MERCK-0701CAN00120

PATIENT
  Sex: Female

DRUGS (4)
  1. COZAAR [Suspect]
     Indication: HYPERTENSION
     Route: 048
     Dates: start: 20051115, end: 20051212
  2. COZAAR [Suspect]
     Route: 048
     Dates: start: 20051213, end: 20060111
  3. COZAAR [Suspect]
     Route: 048
     Dates: start: 20060112
  4. HYZAAR [Suspect]
     Indication: HYPERTENSION
     Route: 048
     Dates: start: 20060112

REACTIONS (1)
  - ADVERSE EVENT [None]
